FAERS Safety Report 4296150-3 (Version None)
Quarter: 2004Q1

REPORT INFORMATION
  Report Type: 
  Country: None (occurrence: None)
  Receive Date: 20040217
  Receipt Date: 20030829
  Transmission Date: 20041129
  Serious: No
  Sender: FDA-Public Use
  Company Number: US-GLAXOSMITHKLINE-A0424150A

PATIENT
  Sex: Female

DRUGS (3)
  1. LAMICTAL [Suspect]
     Indication: BIPOLAR II DISORDER
     Dosage: 100MG PER DAY
     Route: 048
  2. NEURONTIN [Concomitant]
     Dosage: 900MG PER DAY
     Route: 065
  3. EFFEXOR XR [Concomitant]
     Dosage: 300MG PER DAY
     Route: 065

REACTIONS (1)
  - DRUG INEFFECTIVE [None]
